FAERS Safety Report 7641663-7 (Version None)
Quarter: 2011Q3

REPORT INFORMATION
  Report Type: 
  Country: None (occurrence: None)
  Receive Date: 20110728
  Receipt Date: 20110725
  Transmission Date: 20111222
  Serious: Yes (Death, Life-Threatening, Hospitalization)
  Sender: FDA-Public Use
  Company Number: US-GLAXOSMITHKLINE-A0936706A

PATIENT
  Age: 44 Year
  Sex: Female

DRUGS (2)
  1. NEXAVAR [Concomitant]
  2. TYKERB [Suspect]
     Indication: NON-SMALL CELL LUNG CANCER
     Dosage: 1250MG PER DAY
     Route: 048

REACTIONS (3)
  - HEPATORENAL SYNDROME [None]
  - MULTI-ORGAN FAILURE [None]
  - NEOPLASM MALIGNANT [None]
